FAERS Safety Report 6878332-7 (Version None)
Quarter: 2010Q3

REPORT INFORMATION
  Report Type: 
  Country: None (occurrence: None)
  Receive Date: 20100728
  Receipt Date: 20100719
  Transmission Date: 20110219
  Serious: Yes (Other)
  Sender: FDA-Public Use
  Company Number: RO-JNJFOC-20080704179

PATIENT
  Sex: Male

DRUGS (11)
  1. CONCERTA [Suspect]
     Indication: ATTENTION DEFICIT/HYPERACTIVITY DISORDER
     Route: 048
  2. CONCERTA [Suspect]
     Route: 048
  3. CONCERTA [Suspect]
     Route: 048
  4. RISPOLEPT [Concomitant]
     Indication: AUTISM
     Route: 048
     Dates: start: 20050809
  5. RISPOLEPT [Concomitant]
     Route: 048
     Dates: start: 20050809
  6. RISPOLEPT [Concomitant]
     Indication: ATTENTION DEFICIT/HYPERACTIVITY DISORDER
     Route: 048
     Dates: start: 20050809
  7. RISPOLEPT [Concomitant]
     Route: 048
     Dates: start: 20050809
  8. CLONAZEPAM [Concomitant]
     Indication: AUTISM
     Route: 048
     Dates: start: 20070130
  9. CLONAZEPAM [Concomitant]
     Indication: ATTENTION DEFICIT/HYPERACTIVITY DISORDER
     Route: 048
     Dates: start: 20070130
  10. SUPRADYN [Concomitant]
     Indication: HYPOMETABOLISM
     Route: 048
     Dates: start: 20071206
  11. SUPRADYN [Concomitant]
     Dosage: 20 DAYS/MONTH
     Route: 048
     Dates: start: 20071206

REACTIONS (3)
  - AGITATION [None]
  - RESTLESSNESS [None]
  - STEREOTYPY [None]
